FAERS Safety Report 9848942 (Version 1)
Quarter: 2014Q1

REPORT INFORMATION
  Report Type: Spontaneous
  Country: US (occurrence: None)
  Receive Date: 20140127
  Receipt Date: 20140127
  Transmission Date: 20141002
  Serious: Yes (Disabling)
  Sender: FDA-Public Use
  Company Number: None

PATIENT
  Age: 35 Year
  Sex: Male
  Weight: 104.33 kg

DRUGS (1)
  1. CIPROFLOXACIN [Suspect]
     Indication: URINARY TRACT INFECTION
     Dosage: 1 TABLET TWICE DAILY TAKEN BY MOUTH
     Route: 048
     Dates: start: 20140121, end: 20140123

REACTIONS (3)
  - Renal pain [None]
  - Chromaturia [None]
  - Haemorrhage urinary tract [None]
